FAERS Safety Report 17956218 (Version 2)
Quarter: 2020Q3

REPORT INFORMATION
  Report Type: Spontaneous
  Country: US (occurrence: US)
  Receive Date: 20200629
  Receipt Date: 20200723
  Transmission Date: 20201103
  Serious: No
  Sender: FDA-Public Use
  Company Number: US-VERTEX PHARMACEUTICALS-2020-013021

PATIENT
  Age: 24 Year
  Sex: Female
  Weight: 61 kg

DRUGS (14)
  1. ACIDOPHILUS [Concomitant]
     Active Substance: LACTOBACILLUS ACIDOPHILUS
     Dosage: 100 MG
  2. CREON [Concomitant]
     Active Substance: PANCRELIPASE AMYLASE\PANCRELIPASE LIPASE\PANCRELIPASE PROTEASE
     Dosage: UNK
  3. VITAMIN D3 [Concomitant]
     Active Substance: CHOLECALCIFEROL
     Dosage: UNK
  4. PROAIR HFA [Concomitant]
     Active Substance: ALBUTEROL SULFATE
     Dosage: UNK
  5. TRIKAFTA [Suspect]
     Active Substance: ELEXACAFTOR\IVACAFTOR\TEZACAFTOR
     Indication: CYSTIC FIBROSIS
     Dosage: 2 TABS (100MG ELEXACAFTOR/50MG TEZACAFTOR/75MG IVACAFTOR) AM AND 1 TAB (150MG IVACAFTOR) PM, BID
     Route: 048
     Dates: start: 20200612, end: 2020
  6. ERRIN [ERYTHROMYCIN] [Concomitant]
     Dosage: .35 MG
  7. OMEPRAZOLE. [Concomitant]
     Active Substance: OMEPRAZOLE
     Dosage: 20 MG
  8. HYPERSAL [Concomitant]
     Active Substance: SODIUM CHLORIDE
     Dosage: UNK
     Route: 045
  9. EFFEXOR [Concomitant]
     Active Substance: VENLAFAXINE HYDROCHLORIDE
     Dosage: 37.5 MG
  10. TOBRAMYCIN. [Concomitant]
     Active Substance: TOBRAMYCIN
     Dosage: 300 MG
     Route: 045
  11. TRIKAFTA [Suspect]
     Active Substance: ELEXACAFTOR\IVACAFTOR\TEZACAFTOR
     Dosage: 1 BLUE TAB IN MORNING, 2 ORANGE TABS IN EVENING
     Route: 048
     Dates: start: 2020
  12. CLARITIN?D NOS [Concomitant]
     Active Substance: LORATADINE\PSEUDOEPHEDRINE SULFATE
     Dosage: UNK
  13. SYMBICORT [Concomitant]
     Active Substance: BUDESONIDE\FORMOTEROL FUMARATE DIHYDRATE
     Dosage: 5 MICROGRAM
  14. AZITHROMYCIN ANHYDROUS. [Concomitant]
     Active Substance: AZITHROMYCIN ANHYDROUS
     Dosage: 250 MG

REACTIONS (11)
  - Diarrhoea [Recovered/Resolved]
  - Photophobia [Unknown]
  - Chest discomfort [Recovered/Resolved]
  - Chest pain [Not Recovered/Not Resolved]
  - Musculoskeletal stiffness [Recovering/Resolving]
  - Anxiety [Recovering/Resolving]
  - Neck pain [Unknown]
  - Muscle fatigue [Recovering/Resolving]
  - Oropharyngeal pain [Not Recovered/Not Resolved]
  - Migraine [Recovering/Resolving]
  - Decreased appetite [Unknown]

NARRATIVE: CASE EVENT DATE: 202006
